FAERS Safety Report 13829012 (Version 1)
Quarter: 2017Q3

REPORT INFORMATION
  Report Type: Spontaneous
  Country: US (occurrence: US)
  Receive Date: 20170803
  Receipt Date: 20170803
  Transmission Date: 20171127
  Serious: Yes (Other)
  Sender: FDA-Public Use
  Company Number: None

PATIENT
  Age: 69 Year
  Sex: Female
  Weight: 79 kg

DRUGS (8)
  1. GENERIC MIRALAX [Concomitant]
  2. MVI [Concomitant]
     Active Substance: VITAMINS
  3. SIMVASTATIN. [Concomitant]
     Active Substance: SIMVASTATIN
  4. BIOTIN [Concomitant]
     Active Substance: BIOTIN
  5. OMEPRAZOLE. [Concomitant]
     Active Substance: OMEPRAZOLE
  6. ARIPIPRAZOLE 10MG [Suspect]
     Active Substance: ARIPIPRAZOLE
     Indication: SCHIZOPHRENIA
     Dosage: 2-3 WEEKS DECEMBER 2016 15MG DAILY PO
     Route: 048
     Dates: start: 201612
  7. CALCIUM [Concomitant]
     Active Substance: CALCIUM
  8. ALLERGY PILL [Concomitant]
     Active Substance: UNSPECIFIED INGREDIENT

REACTIONS (4)
  - Product substitution issue [None]
  - Aphasia [None]
  - Drug ineffective [None]
  - Dysarthria [None]

NARRATIVE: CASE EVENT DATE: 20161221
